FAERS Safety Report 6020079-3 (Version None)
Quarter: 2008Q4

REPORT INFORMATION
  Report Type: 
  Country: None (occurrence: None)
  Receive Date: 20081226
  Receipt Date: 20081212
  Transmission Date: 20090506
  Serious: Yes (Hospitalization)
  Sender: FDA-Public Use
  Company Number: US-BAYER-200832863NA

PATIENT
  Age: 21 Year
  Sex: Female
  Weight: 54 kg

DRUGS (3)
  1. BETASERON [Suspect]
     Indication: RELAPSING-REMITTING MULTIPLE SCLEROSIS
  2. BETASERON [Suspect]
  3. STEROIDS [Concomitant]
     Dates: start: 20081201

REACTIONS (6)
  - ERYTHEMA [None]
  - MULTIPLE SCLEROSIS RELAPSE [None]
  - PURULENT DISCHARGE [None]
  - SKIN DISCOLOURATION [None]
  - SKIN DISORDER [None]
  - ULCER [None]
